FAERS Safety Report 7030754-X (Version None)
Quarter: 2010Q4

REPORT INFORMATION
  Report Type: 
  Country: None (occurrence: None)
  Receive Date: 20101006
  Receipt Date: 20101001
  Transmission Date: 20110411
  Serious: Yes (Other)
  Sender: FDA-Public Use
  Company Number: US-RB-014853-10

PATIENT
  Age: 21 Year
  Sex: Male

DRUGS (1)
  1. SUBOXONE TABLETS [Suspect]
     Indication: DRUG DEPENDENCE
     Dosage: DOSE IS TAPERED FROM 24 MG TO 12 MG DAILY
     Route: 060
     Dates: start: 20090401

REACTIONS (3)
  - ALOPECIA [None]
  - HALLUCINATION [None]
  - SUICIDAL IDEATION [None]
